FAERS Safety Report 9229154 (Version 4)
Quarter: 2015Q4

REPORT INFORMATION
  Report Type: Spontaneous
  Country: US (occurrence: US)
  Receive Date: 20130412
  Receipt Date: 20151218
  Transmission Date: 20160305
  Serious: Yes (Hospitalization, Other)
  Sender: FDA-Public Use
  Company Number: US-ASTELLAS-2013US002537

PATIENT
  Age: 57 Year
  Sex: Male

DRUGS (9)
  1. FUROSEMIDE. [Concomitant]
     Active Substance: FUROSEMIDE
     Indication: PRODUCT USED FOR UNKNOWN INDICATION
     Route: 048
  2. METOPROLOL [Concomitant]
     Active Substance: METOPROLOL
     Indication: PRODUCT USED FOR UNKNOWN INDICATION
     Route: 048
  3. WARFARIN [Concomitant]
     Active Substance: WARFARIN
     Indication: PRODUCT USED FOR UNKNOWN INDICATION
     Route: 048
  4. PROGRAF [Suspect]
     Active Substance: TACROLIMUS\TACROLIMUS ANHYDROUS
     Route: 048
  5. PROGRAF [Suspect]
     Active Substance: TACROLIMUS\TACROLIMUS ANHYDROUS
     Indication: PANCREAS TRANSPLANT
     Route: 048
     Dates: start: 20050324
  6. FUROSEMIDE. [Concomitant]
     Active Substance: FUROSEMIDE
     Route: 048
     Dates: start: 20121109
  7. PROGRAF [Suspect]
     Active Substance: TACROLIMUS\TACROLIMUS ANHYDROUS
     Indication: RENAL TRANSPLANT
     Route: 048
     Dates: start: 1993
  8. MYFORTIC [Concomitant]
     Active Substance: MYCOPHENOLATE SODIUM
     Indication: PRODUCT USED FOR UNKNOWN INDICATION
     Route: 048
  9. WARFARIN [Concomitant]
     Active Substance: WARFARIN
     Dosage: 1.5 CAPSULES, ONCE DAILY
     Route: 048

REACTIONS (26)
  - Arteriosclerosis coronary artery [Unknown]
  - Unevaluable event [Unknown]
  - Dizziness [Not Recovered/Not Resolved]
  - Muscular weakness [Unknown]
  - Renal transplant [Unknown]
  - Weight increased [Unknown]
  - Off label use [Unknown]
  - Coronary artery bypass [Unknown]
  - Plantar fasciitis [Unknown]
  - Abdominal distension [Not Recovered/Not Resolved]
  - Hypertension [Unknown]
  - Constipation [Not Recovered/Not Resolved]
  - Arthralgia [Unknown]
  - Asthenia [Unknown]
  - Heart rate irregular [Unknown]
  - Vertigo [Unknown]
  - Peripheral vascular disorder [Unknown]
  - Vision blurred [Unknown]
  - Blood urea increased [Unknown]
  - Blood parathyroid hormone increased [Unknown]
  - Pain in extremity [Unknown]
  - Fatigue [Unknown]
  - Cerebrovascular accident [Unknown]
  - Mood altered [Unknown]
  - Renal transplant failure [Unknown]
  - Blood creatinine increased [Unknown]

NARRATIVE: CASE EVENT DATE: 2001
